FAERS Safety Report 5730255-2 (Version None)
Quarter: 2008Q2

REPORT INFORMATION
  Report Type: 
  Country: None (occurrence: None)
  Receive Date: 20080505
  Receipt Date: 20080505
  Transmission Date: 20081010
  Serious: Yes (Life-Threatening, Other)
  Sender: FDA-Public Use
  Company Number: None

PATIENT
  Age: 63 Year
  Sex: Female
  Weight: 49.8957 kg

DRUGS (1)
  1. DIGITEK 0.25 BERTEK [Suspect]
     Indication: MITRAL VALVE REPLACEMENT
     Dosage: 1 TABLET DAILY
     Dates: start: 19940805

REACTIONS (3)
  - BLOOD PRESSURE INCREASED [None]
  - DISORIENTATION [None]
  - HYPERHIDROSIS [None]
